FAERS Safety Report 17195837 (Version 1)
Quarter: 2019Q4

REPORT INFORMATION
  Report Type: Report from Study
  Country: US (occurrence: US)
  Receive Date: 20191224
  Receipt Date: 20191224
  Transmission Date: 20200122
  Serious: Yes (Other)
  Sender: FDA-Public Use
  Company Number: US-BAYER-2019-232550

PATIENT
  Age: 61 Year
  Sex: Male

DRUGS (1)
  1. STIVARGA [Suspect]
     Active Substance: REGORAFENIB
     Indication: APPENDIX CANCER
     Dosage: 120 MG, BID
     Route: 048
     Dates: start: 20191127

REACTIONS (6)
  - Decreased appetite [Unknown]
  - Product use in unapproved indication [None]
  - Neuropathy peripheral [Unknown]
  - Overdose [None]
  - Taste disorder [Unknown]
  - Off label use [None]

NARRATIVE: CASE EVENT DATE: 20191127
